FAERS Safety Report 17361884 (Version 1)
Quarter: 2020Q1

REPORT INFORMATION
  Report Type: Spontaneous
  Country: US (occurrence: US)
  Receive Date: 20200131
  Receipt Date: 20200131
  Transmission Date: 20200409
  Serious: Yes (Death, Life-Threatening, Hospitalization, Disabling, Other)
  Sender: FDA-Public Use
  Company Number: None

PATIENT
  Age: 69 Year
  Sex: Male
  Weight: 67.5 kg

DRUGS (1)
  1. CEFEPIME [Suspect]
     Active Substance: CEFEPIME HYDROCHLORIDE
     Indication: INFECTION
     Dosage: ?          OTHER STRENGTH:PER 100ML SALINE;OTHER ROUTE:CENTRAL LINE/PORT?
     Dates: start: 20190227, end: 20190310

REACTIONS (8)
  - Hip fracture [None]
  - Dissociation [None]
  - Catatonia [None]
  - Dialysis [None]
  - Confusional state [None]
  - Muscle atrophy [None]
  - Fall [None]
  - Renal failure [None]

NARRATIVE: CASE EVENT DATE: 20190308
